FAERS Safety Report 6658072-X (Version None)
Quarter: 2010Q1

REPORT INFORMATION
  Report Type: 
  Country: None (occurrence: None)
  Receive Date: 20100330
  Receipt Date: 20100322
  Transmission Date: 20100710
  Serious: Yes (Hospitalization, Other)
  Sender: FDA-Public Use
  Company Number: US-MERCK-0910USA03024

PATIENT
  Age: 51 Year
  Sex: Male
  Weight: 99 kg

DRUGS (4)
  1. FOSAMAX [Suspect]
     Indication: OSTEOPOROSIS
     Route: 048
     Dates: start: 20020318, end: 20080818
  2. FOSAMAX [Suspect]
     Indication: OSTEOPENIA
     Route: 048
     Dates: start: 20020318, end: 20080818
  3. LISINOPRIL [Concomitant]
     Indication: PROPHYLAXIS
     Route: 065
     Dates: start: 20000101
  4. HYDROCHLOROTHIAZIDE [Concomitant]
     Route: 065
     Dates: start: 20010101

REACTIONS (27)
  - ACUTE SINUSITIS [None]
  - ADVERSE EVENT [None]
  - ANKLE FRACTURE [None]
  - ARTHROPATHY [None]
  - BONE CYST [None]
  - BRONCHITIS [None]
  - CERVICOBRACHIAL SYNDROME [None]
  - EXCORIATION [None]
  - FALL [None]
  - FEMUR FRACTURE [None]
  - FRACTURE [None]
  - GAIT DISTURBANCE [None]
  - HAEMORRHAGIC ANAEMIA [None]
  - HERPES ZOSTER [None]
  - HYPERCALCIURIA [None]
  - HYPERCHOLESTEROLAEMIA [None]
  - INTERVERTEBRAL DISC PROTRUSION [None]
  - LIMB DEFORMITY [None]
  - LOW TURNOVER OSTEOPATHY [None]
  - MEDICAL DEVICE COMPLICATION [None]
  - MYALGIA [None]
  - OEDEMA PERIPHERAL [None]
  - OSTEOPOROSIS [None]
  - PAIN IN EXTREMITY [None]
  - POST PROCEDURAL HAEMATURIA [None]
  - SPONDYLOLISTHESIS [None]
  - TRIGGER FINGER [None]
